FAERS Safety Report 5494066-8 (Version None)
Quarter: 2007Q4

REPORT INFORMATION
  Report Type: 
  Country: None (occurrence: None)
  Receive Date: 20071023
  Receipt Date: 20071011
  Transmission Date: 20080405
  Serious: Yes (Other)
  Sender: FDA-Public Use
  Company Number: US-PFIZER INC-2007086777

PATIENT
  Sex: Female
  Weight: 58.636 kg

DRUGS (9)
  1. CHANTIX [Suspect]
     Indication: SMOKING CESSATION THERAPY
  2. PHENYTOIN [Concomitant]
  3. PHENOBARBITONE [Concomitant]
  4. NADOLOL [Concomitant]
  5. HYOSCYAMINE [Concomitant]
  6. EVISTA [Concomitant]
  7. AMLODIPINE [Concomitant]
  8. SPIRIVA [Concomitant]
     Dosage: FREQ:AS NEEDED
  9. ALLEGRA [Concomitant]
     Dosage: FREQ:AS NEEDED

REACTIONS (5)
  - GAIT DISTURBANCE [None]
  - MUSCULOSKELETAL STIFFNESS [None]
  - NAUSEA [None]
  - PAIN IN EXTREMITY [None]
  - VOMITING [None]
